FAERS Safety Report 7798991-4 (Version None)
Quarter: 2011Q4

REPORT INFORMATION
  Report Type: 
  Country: None (occurrence: None)
  Receive Date: 20111005
  Receipt Date: 20111005
  Transmission Date: 20120403
  Serious: Yes (Hospitalization)
  Sender: FDA-Public Use
  Company Number: None

PATIENT
  Sex: Female
  Weight: 64.1 kg

DRUGS (2)
  1. CARBOPLATIN [Suspect]
     Dosage: 393 MG
     Dates: end: 20110525
  2. TAXOL [Suspect]
     Dosage: 396 MG
     Dates: end: 20110608

REACTIONS (6)
  - ARTHRITIS [None]
  - BACK PAIN [None]
  - SINUS TACHYCARDIA [None]
  - NECK PAIN [None]
  - ABASIA [None]
  - MUSCLE SPASMS [None]
